FAERS Safety Report 4914818-X (Version None)
Quarter: 2006Q1

REPORT INFORMATION
  Report Type: 
  Country: None (occurrence: None)
  Receive Date: 20060113
  Receipt Date: 20051024
  Transmission Date: 20060701
  Serious: No
  Sender: FDA-Public Use
  Company Number: 2005SP003647

PATIENT
  Age: 39 Year
  Sex: Male
  Weight: 87 kg

DRUGS (6)
  1. LUNESTA [Suspect]
     Indication: RENAL FAILURE
     Dosage: 3 MG; HS; ORAL
     Route: 048
     Dates: start: 20050920
  2. GENGRAF [Concomitant]
  3. CARDIZEM [Concomitant]
  4. SODIUM BICARBONATE [Concomitant]
  5. VALCYTE [Concomitant]
  6. CLONIDINE [Concomitant]

REACTIONS (2)
  - DEHYDRATION [None]
  - DYSGEUSIA [None]
